FAERS Safety Report 11958983 (Version 2)
Quarter: 2016Q1

REPORT INFORMATION
  Report Type: Spontaneous
  Country: NL (occurrence: NL)
  Receive Date: 20160126
  Receipt Date: 20160207
  Transmission Date: 20160526
  Serious: Yes (Death)
  Sender: FDA-Public Use
  Company Number: NL-ACTELION-A-CH2016-130412

PATIENT
  Age: 64 Week
  Sex: Male
  Weight: 10 kg

DRUGS (2)
  1. TRACLEER [Suspect]
     Active Substance: BOSENTAN
     Indication: PULMONARY ARTERIAL HYPERTENSION
     Dosage: 32 MG, BID
     Route: 048
     Dates: start: 2014, end: 20160108
  2. SILDENAFIL. [Suspect]
     Active Substance: SILDENAFIL
     Indication: PULMONARY HYPERTENSION
     Dosage: 16 MG, TID
     Route: 048
     Dates: start: 2014, end: 20160108

REACTIONS (6)
  - Disease progression [Fatal]
  - Discomfort [Fatal]
  - Loss of consciousness [Fatal]
  - Pulmonary hypertensive crisis [Fatal]
  - Pulmonary arterial hypertension [Fatal]
  - Oxygen saturation decreased [Fatal]

NARRATIVE: CASE EVENT DATE: 20160108
